FAERS Safety Report 4348137-X (Version None)
Quarter: 2004Q1

REPORT INFORMATION
  Report Type: 
  Country: None (occurrence: None)
  Receive Date: 20040325
  Receipt Date: 20040212
  Transmission Date: 20041129
  Serious: No
  Sender: FDA-Public Use
  Company Number: USA040259300

PATIENT
  Age: 46 Year
  Sex: Female

DRUGS (2)
  1. FORTEO [Suspect]
  2. COUMADIN [Concomitant]

REACTIONS (4)
  - INJECTION SITE BURNING [None]
  - INJECTION SITE HAEMORRHAGE [None]
  - INJECTION SITE NODULE [None]
  - INJECTION SITE PAIN [None]
